FAERS Safety Report 10663091 (Version 1)
Quarter: 2014Q4

REPORT INFORMATION
  Report Type: Spontaneous
  Country: US (occurrence: US)
  Receive Date: 20141218
  Receipt Date: 20141218
  Transmission Date: 20150529
  Serious: No
  Sender: FDA-Public Use
  Company Number: US-GLAXOSMITHKLINE-A1090547A

PATIENT

DRUGS (16)
  1. MEDROL [Concomitant]
     Active Substance: METHYLPREDNISOLONE
  2. TYLENOL [Concomitant]
     Active Substance: ACETAMINOPHEN
  3. DIPHENHYDRAMINE HCL [Concomitant]
     Active Substance: DIPHENHYDRAMINE HYDROCHLORIDE
  4. COENZYME Q10 [Concomitant]
     Active Substance: UBIDECARENONE
  5. MEKINIST [Suspect]
     Active Substance: TRAMETINIB DIMETHYL SULFOXIDE
     Indication: PRODUCT USED FOR UNKNOWN INDICATION
     Dosage: 1 MG, QD
     Route: 048
     Dates: start: 201407, end: 20140904
  6. NAMENDA [Concomitant]
     Active Substance: MEMANTINE HYDROCHLORIDE
  7. IBUPROFEN. [Concomitant]
     Active Substance: IBUPROFEN
  8. MAGNESIUM CITRATE. [Concomitant]
     Active Substance: MAGNESIUM CITRATE
  9. TAFINLAR [Suspect]
     Active Substance: DABRAFENIB MESYLATE
     Indication: PRODUCT USED FOR UNKNOWN INDICATION
     Dosage: 100 MG, BID
     Route: 048
     Dates: start: 201407, end: 20140904
  10. MIRALAX [Concomitant]
     Active Substance: POLYETHYLENE GLYCOL 3350
  11. CARAFATE [Concomitant]
     Active Substance: SUCRALFATE
  12. MULTIVITAMINS [Concomitant]
     Active Substance: VITAMINS
  13. ASPIRIN. [Concomitant]
     Active Substance: ASPIRIN
  14. TUMS [Concomitant]
     Active Substance: CALCIUM CARBONATE
  15. TRAMADOL [Concomitant]
     Active Substance: TRAMADOL
  16. DIGESTIVE ENZYMES [Concomitant]
     Active Substance: UNSPECIFIED INGREDIENT

REACTIONS (7)
  - Pruritus [Unknown]
  - Rash [Recovering/Resolving]
  - Gastrooesophageal reflux disease [Unknown]
  - Erythema [Unknown]
  - Skin exfoliation [Unknown]
  - Peripheral swelling [Unknown]
  - Pain in extremity [Unknown]
